FAERS Safety Report 15007124 (Version 1)
Quarter: 2018Q2

REPORT INFORMATION
  Report Type: Spontaneous
  Country: US (occurrence: US)
  Receive Date: 20180613
  Receipt Date: 20180613
  Transmission Date: 20180711
  Serious: No
  Sender: FDA-Public Use
  Company Number: US-BAYER-2018-112609

PATIENT
  Age: 52 Year
  Sex: Male
  Weight: 87.98 kg

DRUGS (3)
  1. MIRALAX [Suspect]
     Active Substance: POLYETHYLENE GLYCOL 3350
     Indication: GASTROINTESTINAL DISORDER
     Dosage: 1 DF, UNK
     Route: 048
     Dates: start: 2004
  2. IBUPROFEN [IBUPROFEN] [Concomitant]
     Active Substance: IBUPROFEN
  3. CHOLESTEROL [Concomitant]
     Active Substance: CHOLESTEROL

REACTIONS (2)
  - Product prescribing issue [Unknown]
  - Product use issue [Unknown]
